FAERS Safety Report 17356166 (Version 1)
Quarter: 2020Q1

REPORT INFORMATION
  Report Type: Spontaneous
  Country: FR (occurrence: FR)
  Receive Date: 20200131
  Receipt Date: 20200131
  Transmission Date: 20200409
  Serious: Yes (Hospitalization)
  Sender: FDA-Public Use
  Company Number: FR-009507513-2001FRA009902

PATIENT
  Age: 64 Year
  Sex: Male

DRUGS (8)
  1. CERIS [Concomitant]
     Active Substance: TROSPIUM CHLORIDE
     Dosage: 2 DOSAGE FORM, QD
     Route: 048
  2. SINEMET L.P. [Suspect]
     Active Substance: CARBIDOPA\LEVODOPA
     Indication: PARKINSON^S DISEASE
     Dosage: 1 DOSAGE FORM, QD
     Route: 048
     Dates: start: 201906
  3. STILNOX [Concomitant]
     Active Substance: ZOLPIDEM TARTRATE
     Dosage: 1 DOSAGE FORM, QD
     Route: 048
  4. ASPIRINE PROTECT [Concomitant]
     Active Substance: ASPIRIN
     Dosage: 1 DOSAGE FORM, QD
     Route: 048
  5. STALEVO [Suspect]
     Active Substance: CARBIDOPA\ENTACAPONE\LEVODOPA
     Indication: PARKINSON^S DISEASE
     Dosage: 5 DOSAGE FORM, QD
     Route: 048
     Dates: end: 201906
  6. ROPINIROLE HYDROCHLORIDE. [Concomitant]
     Active Substance: ROPINIROLE HYDROCHLORIDE
     Dosage: 6 MBQ, QD
     Route: 048
     Dates: start: 201906
  7. SINEMET [Suspect]
     Active Substance: CARBIDOPA\LEVODOPA
     Dosage: 12.5 DOSAGE FORM, QD
     Route: 048
     Dates: start: 201906
  8. HYDREA [Concomitant]
     Active Substance: HYDROXYUREA
     Dosage: 3 DOSAGE FORM, QD
     Route: 048

REACTIONS (2)
  - Gambling disorder [Not Recovered/Not Resolved]
  - Gambling [Not Recovered/Not Resolved]

NARRATIVE: CASE EVENT DATE: 2019
